FAERS Safety Report 11896603 (Version 1)
Quarter: 2016Q1

REPORT INFORMATION
  Report Type: Spontaneous
  Country: US (occurrence: US)
  Receive Date: 20160107
  Receipt Date: 20160107
  Transmission Date: 20160526
  Serious: Yes (Other)
  Sender: FDA-Public Use
  Company Number: US-BAYER-2016-001303

PATIENT
  Age: 66 Year
  Sex: Female
  Weight: 78.5 kg

DRUGS (3)
  1. ALKA-SELTZER PLUS COLD FORMULA [Suspect]
     Active Substance: ASPIRIN\CHLORPHENIRAMINE MALEATE\PHENYLEPHRINE BITARTRATE
     Indication: NASOPHARYNGITIS
     Route: 048
  2. ALKA-SELTZER PLUS SEVERE COLD, MUCUS AND CONGESTION [Suspect]
     Active Substance: ACETAMINOPHEN\DEXTROMETHORPHAN HYDROBROMIDE\GUAIFENESIN\PHENYLEPHRINE HYDROCHLORIDE
     Indication: NASOPHARYNGITIS
     Dosage: 1 DF, ONCE
     Dates: start: 20160103, end: 20160103
  3. DIOVAN [Concomitant]
     Active Substance: VALSARTAN

REACTIONS (3)
  - Product use issue [None]
  - Choking [None]
  - Product taste abnormal [None]

NARRATIVE: CASE EVENT DATE: 20160103
